FAERS Safety Report 7551749-3 (Version None)
Quarter: 2011Q2

REPORT INFORMATION
  Report Type: 
  Country: None (occurrence: None)
  Receive Date: 20110616
  Receipt Date: 20110610
  Transmission Date: 20111010
  Serious: Yes (Hospitalization)
  Sender: FDA-Public Use
  Company Number: A0907236A

PATIENT
  Age: 53 Year
  Sex: Male

DRUGS (1)
  1. AVANDIA [Suspect]
     Dosage: 4MG PER DAY
     Route: 048
     Dates: start: 20030101, end: 20070101

REACTIONS (5)
  - MYOCARDIAL INFARCTION [None]
  - DYSPNOEA [None]
  - VASCULAR GRAFT [None]
  - CHEST PAIN [None]
  - CARDIAC DISORDER [None]
